FAERS Safety Report 8959052 (Version 1)
Quarter: 2012Q4

REPORT INFORMATION
  Report Type: 
  Country: GB (occurrence: GB)
  Receive Date: 20121211
  Receipt Date: 20121211
  Transmission Date: 20130627
  Serious: Yes (Life-Threatening, Other)
  Sender: FDA-Public Use
  Company Number: GB-ABBOTT-12P-167-1019372-00

PATIENT
  Age: 59 Year
  Sex: Male

DRUGS (4)
  1. IBUPROFEN [Suspect]
     Indication: PAIN
     Dosage: Cumulative dose to 1st rxn:2400mg. Form of admin unspecified
     Route: 048
     Dates: start: 20070915, end: 20070918
  2. PARACETAMOL [Concomitant]
     Indication: PAIN
     Dosage: Dosage form unspecified
     Route: 048
     Dates: start: 20070915
  3. OLANZAPINE [Concomitant]
     Indication: PSYCHOTIC DISORDER
     Dosage: Cumulative dose to first rxn:820mg. Dosage form: unspecified
     Route: 048
     Dates: start: 20070807
  4. ACETAMINOPHEN [Concomitant]
     Indication: PAIN

REACTIONS (1)
  - Cardiac failure [Not Recovered/Not Resolved]
